FAERS Safety Report 7996379-4 (Version None)
Quarter: 2011Q4

REPORT INFORMATION
  Report Type: 
  Country: None (occurrence: None)
  Receive Date: 20111220
  Receipt Date: 20111214
  Transmission Date: 20120403
  Serious: Yes (Death)
  Sender: FDA-Public Use
  Company Number: US-MERCK-1112USA01772

PATIENT
  Age: 60 Year
  Sex: Male

DRUGS (4)
  1. ISENTRESS [Suspect]
     Indication: HIV INFECTION
     Route: 048
  2. PREZISTA [Concomitant]
     Route: 065
  3. NORVIR [Concomitant]
     Route: 065
  4. TRUVADA [Concomitant]
     Route: 065

REACTIONS (1)
  - DEATH [None]
